FAERS Safety Report 5136925-1 (Version None)
Quarter: 2006Q4

REPORT INFORMATION
  Report Type: 
  Country: None (occurrence: None)
  Receive Date: 20061023
  Receipt Date: 20061010
  Transmission Date: 20070319
  Serious: Yes (Other)
  Sender: FDA-Public Use
  Company Number: 2006125207

PATIENT
  Sex: Male

DRUGS (1)
  1. SILDENAFIL (PAH) (SILDENAFIL) [Suspect]
     Indication: PULMONARY HYPERTENSION

REACTIONS (1)
  - PRIAPISM [None]
